FAERS Safety Report 6507035-3 (Version None)
Quarter: 2009Q4

REPORT INFORMATION
  Report Type: 
  Country: None (occurrence: None)
  Receive Date: 20091127
  Receipt Date: 20090403
  Transmission Date: 20100525
  Serious: Yes (Hospitalization)
  Sender: FDA-Public Use
  Company Number: US200904001018

PATIENT
  Age: 70 Year
  Sex: Female
  Weight: 117.9 kg

DRUGS (14)
  1. BYETTA [Suspect]
     Indication: TYPE 2 DIABETES MELLITUS
     Dosage: 5 UG, DAILY (1/D), SUBCUTANEOUS; 10 UG, DAILY (1/D), SUBCUTANEOUS; 10 UG, 2/D, SUBCUTANEOUS
     Route: 058
     Dates: start: 20090127, end: 20090225
  2. BYETTA [Suspect]
     Indication: TYPE 2 DIABETES MELLITUS
     Dosage: 5 UG, DAILY (1/D), SUBCUTANEOUS; 10 UG, DAILY (1/D), SUBCUTANEOUS; 10 UG, 2/D, SUBCUTANEOUS
     Route: 058
     Dates: start: 20090226, end: 20090325
  3. BYETTA [Suspect]
     Indication: TYPE 2 DIABETES MELLITUS
     Dosage: 5 UG, DAILY (1/D), SUBCUTANEOUS; 10 UG, DAILY (1/D), SUBCUTANEOUS; 10 UG, 2/D, SUBCUTANEOUS
     Route: 058
     Dates: start: 20090326
  4. EXENATIDE 5MCG PEN, DISPOSABLE DEVICE (EXENATIDE PEN ( 5MCG)) PEN  DIS [Concomitant]
  5. EXENATIDE 10MCG PEN, DISPOSABLE DEVICE (EXENATIDE PEN (10MCG)) PEN,DIS [Concomitant]
  6. GLIPIZIDE [Concomitant]
  7. LYRICA [Concomitant]
  8. LIPITOR [Concomitant]
  9. ENALAPRIL MALEATE [Concomitant]
  10. DETROL [Concomitant]
  11. NEXIUM [Concomitant]
  12. VITAMINS [Concomitant]
  13. IRON (IRON) [Concomitant]
  14. INSULIN (INSULIN) [Concomitant]

REACTIONS (7)
  - ABDOMINAL PAIN UPPER [None]
  - ARTHRALGIA [None]
  - BLOOD GLUCOSE INCREASED [None]
  - DECREASED APPETITE [None]
  - JOINT INJURY [None]
  - VOMITING [None]
  - WEIGHT INCREASED [None]
